FAERS Safety Report 4933957-0 (Version None)
Quarter: 2006Q1

REPORT INFORMATION
  Report Type: 
  Country: None (occurrence: None)
  Receive Date: 20060303
  Receipt Date: 20060218
  Transmission Date: 20060701
  Serious: Yes (Hospitalization, Disabling)
  Sender: FDA-Public Use
  Company Number: 222316

PATIENT
  Age: 46 Year
  Sex: Female

DRUGS (4)
  1. MABTHERA (RITUXIMAB) CONC FOR SOLUTION FOR INFUSION [Suspect]
     Indication: BASEDOW'S DISEASE
     Dosage: 750 MG, 1/WEEK, INTRAVENOUS
     Route: 042
     Dates: start: 20050919
  2. THIAMAZOLE (METHIMAZOLE) [Suspect]
     Indication: BASEDOW'S DISEASE
     Dosage: 2.5 MG, ORAL; SEE IMAGE
     Route: 048
     Dates: start: 20050429
  3. CENTYL (BENDROFLUMETHIAZIDE) [Concomitant]
  4. ENALAPRIL MALEATE [Concomitant]

REACTIONS (15)
  - ABNORMAL FAECES [None]
  - ARTHRALGIA [None]
  - BACK PAIN [None]
  - CONDITION AGGRAVATED [None]
  - FREQUENT BOWEL MOVEMENTS [None]
  - HAEMATOCHEZIA [None]
  - INFLAMMATORY BOWEL DISEASE [None]
  - LABORATORY TEST ABNORMAL [None]
  - PERICARDITIS [None]
  - PLEURISY [None]
  - PROCTOCOLITIS [None]
  - PYREXIA [None]
  - SACROILIITIS [None]
  - SERUM SICKNESS [None]
  - SPONDYLITIS [None]
